FAERS Safety Report 9796948 (Version 4)
Quarter: 2015Q1

REPORT INFORMATION
  Report Type: Spontaneous
  Country: US (occurrence: US)
  Receive Date: 20140105
  Receipt Date: 20150305
  Transmission Date: 20150721
  Serious: Yes (Death, Life-Threatening, Hospitalization, Other)
  Sender: FDA-Public Use
  Company Number: US-MERCK-1401USA000597

PATIENT
  Sex: Male
  Weight: 97.96 kg

DRUGS (1)
  1. JANUVIA [Suspect]
     Active Substance: SITAGLIPTIN PHOSPHATE
     Indication: TYPE 2 DIABETES MELLITUS
     Dosage: 100 MG, QD
     Route: 048
     Dates: start: 20070626, end: 20120401

REACTIONS (26)
  - Deep vein thrombosis [Unknown]
  - Lymphadenopathy mediastinal [Unknown]
  - Embolism venous [Unknown]
  - Pleural effusion [Unknown]
  - Oedema peripheral [Unknown]
  - Seizure [Unknown]
  - Back pain [Unknown]
  - Lymphadenopathy [Unknown]
  - Dermatitis acneiform [Unknown]
  - Toothache [Unknown]
  - Phlebitis [Unknown]
  - Neuropathy peripheral [Unknown]
  - Catheter site pain [Unknown]
  - Insomnia [Unknown]
  - Lymphadenopathy [Unknown]
  - Osteosclerosis [Unknown]
  - Pancreatic carcinoma metastatic [Fatal]
  - Metastases to liver [Unknown]
  - Dysphagia [Recovered/Resolved]
  - Neuropathy peripheral [Unknown]
  - Thrombocytopenia [Unknown]
  - Headache [Unknown]
  - Depressive symptom [Unknown]
  - Neutropenia [Unknown]
  - Pericardial effusion [Unknown]
  - Dysuria [Unknown]

NARRATIVE: CASE EVENT DATE: 2011
